FAERS Safety Report 18563506 (Version 2)
Quarter: 2020Q4

REPORT INFORMATION
  Report Type: Spontaneous
  Country: US (occurrence: US)
  Receive Date: 20201201
  Receipt Date: 20201210
  Transmission Date: 20210114
  Serious: No
  Sender: FDA-Public Use
  Company Number: US-AMGEN-USASP2020191301

PATIENT
  Age: 72 Year
  Sex: Male

DRUGS (3)
  1. PROLIA [Suspect]
     Active Substance: DENOSUMAB
     Indication: PROSTATE CANCER METASTATIC
     Dosage: UNK
     Route: 065
     Dates: start: 2020
  2. ENZALUTAMIDE [Concomitant]
     Active Substance: ENZALUTAMIDE
  3. LUPRON [Concomitant]
     Active Substance: LEUPROLIDE ACETATE

REACTIONS (3)
  - Pain in extremity [Unknown]
  - Musculoskeletal stiffness [Unknown]
  - Pain [Unknown]

NARRATIVE: CASE EVENT DATE: 2020
